FAERS Safety Report 4855010-7 (Version None)
Quarter: 2005Q4

REPORT INFORMATION
  Report Type: 
  Country: None (occurrence: None)
  Receive Date: 20051214
  Receipt Date: 20051201
  Transmission Date: 20060501
  Serious: Yes (Other)
  Sender: FDA-Public Use
  Company Number: 2005JP002353

PATIENT
  Age: 47 Year
  Sex: Female

DRUGS (5)
  1. PROGRAF [Suspect]
     Indication: RENAL TRANSPLANT
     Dates: start: 20040101
  2. MYCOPHENOLATE MOFETIL (MYCOPHENOLATE MOFETIL) [Suspect]
     Indication: RENAL TRANSPLANT
     Dates: start: 20040101, end: 20050101
  3. PREDNISONE [Concomitant]
  4. BASILIXIMAB (BASILIXIMAB) [Concomitant]
  5. RITUXIMAB (RITUXIMAB) [Concomitant]

REACTIONS (12)
  - AGRANULOCYTOSIS [None]
  - BLOOD CREATININE INCREASED [None]
  - COMPLICATIONS OF TRANSPLANTED KIDNEY [None]
  - CYTOMEGALOVIRUS INFECTION [None]
  - GENERALISED OEDEMA [None]
  - HYPOGAMMAGLOBULINAEMIA [None]
  - MYELOID MATURATION ARREST [None]
  - PROTEINURIA [None]
  - PYREXIA [None]
  - THERAPY NON-RESPONDER [None]
  - URINE OUTPUT DECREASED [None]
  - WEIGHT INCREASED [None]
